FAERS Safety Report 19721744 (Version 16)
Quarter: 2023Q1

REPORT INFORMATION
  Report Type: Spontaneous
  Country: CA (occurrence: CA)
  Receive Date: 20210819
  Receipt Date: 20230315
  Transmission Date: 20230417
  Serious: Yes (Other)
  Sender: FDA-Public Use
  Company Number: CA-CELLTRION INC.-2021CA011252

PATIENT

DRUGS (24)
  1. INFLECTRA [Suspect]
     Active Substance: INFLIXIMAB-DYYB
     Indication: Crohn^s disease
     Dosage: 400 MG Q 0, 2, 6 WEEKS, THEN EVERY 8 WEEKS(INDUCTION: HOSPITAL START)
     Route: 042
     Dates: start: 20210517, end: 20210701
  2. INFLECTRA [Suspect]
     Active Substance: INFLIXIMAB-DYYB
     Dosage: 400 MG Q 0, 2, 6 WEEKS, THEN EVERY 8 WEEKS
     Route: 042
     Dates: start: 20210701
  3. INFLECTRA [Suspect]
     Active Substance: INFLIXIMAB-DYYB
     Dosage: 400 MG Q 0, 2, 6 WEEKS, THEN EVERY 8 WEEKS
     Route: 042
     Dates: start: 20210729
  4. INFLECTRA [Suspect]
     Active Substance: INFLIXIMAB-DYYB
     Dosage: 400 MG Q 0, 2, 6 WEEKS, THEN EVERY 8 WEEKS
     Route: 042
     Dates: start: 20210826, end: 20210930
  5. INFLECTRA [Suspect]
     Active Substance: INFLIXIMAB-DYYB
     Dosage: 400 MG EVERY 8 WEEK (MAINTENANCE DOSE)
     Route: 042
     Dates: start: 20210826, end: 20210930
  6. INFLECTRA [Suspect]
     Active Substance: INFLIXIMAB-DYYB
     Dosage: 800 MG, EVERY 6 WEEK (SUPPOSED TO RECEIVE 10 MG/KG)
     Route: 042
     Dates: start: 20220610
  7. INFLECTRA [Suspect]
     Active Substance: INFLIXIMAB-DYYB
     Dosage: 10 MG/KG, EVERY 6 WEEKS, MAINTENANCE DOSE, BASED ON THE PATIENT^S WEIGHT ON INFUSION DAY
     Route: 042
  8. INFLECTRA [Suspect]
     Active Substance: INFLIXIMAB-DYYB
     Dosage: 800 MG (SUPPOSED TO RECEIVE 10 MG/KG) EVERY 6 WEEK(MAINTENANCE DOSE, BASED ON WEIGHT)
     Route: 042
     Dates: start: 20220722
  9. INFLECTRA [Suspect]
     Active Substance: INFLIXIMAB-DYYB
     Dosage: 800 MG (SUPPOSED TO RECEIVE 900 MG EVERY 6 WEEKS)
     Route: 042
     Dates: start: 20220902
  10. INFLECTRA [Suspect]
     Active Substance: INFLIXIMAB-DYYB
     Dosage: 800 MG (SUPPOSED TO RECEIVE 900 MG) EVERY 6 WEEK
     Route: 042
     Dates: start: 20221020
  11. INFLECTRA [Suspect]
     Active Substance: INFLIXIMAB-DYYB
     Dosage: 800 MG SUPPOSED TO RECEIVE 900 MG. (LOCAL PHARMACY HAD PRESCRIPTION WITH DIFFERENT DOSE OF 800MG)
     Route: 042
     Dates: start: 20230120
  12. INFLECTRA [Suspect]
     Active Substance: INFLIXIMAB-DYYB
     Dosage: 5 MG/KG RE INDUCTION WEEK 0,2,6 THEN Q 8 WEEKS (PRESCRIPTION IN THE WRONG FILE)
     Route: 042
  13. INFLECTRA [Suspect]
     Active Substance: INFLIXIMAB-DYYB
     Dosage: 900 MG EVERY 6 WEEK
     Route: 042
  14. INFLECTRA [Suspect]
     Active Substance: INFLIXIMAB-DYYB
     Dosage: 800 MG EVERY 6 WEEK
     Route: 042
     Dates: start: 20230306
  15. AVAPRO [Concomitant]
     Active Substance: IRBESARTAN
     Dosage: 1 DF, DOSAGE INFORMATION NOT AVAILABLE
  16. CORTISONE [Concomitant]
     Active Substance: CORTISONE
     Dosage: 50 MG (GRADUALLY DECREASING)
     Dates: start: 20210519, end: 20210728
  17. FER O FER [Concomitant]
     Dosage: 1 DF
  18. IRON [Concomitant]
     Active Substance: IRON
     Dosage: 1 DF, DOSAGE INFORMATION IS NOT AVAILABLE
  19. METHOTREXATE [Concomitant]
     Active Substance: METHOTREXATE
     Dosage: 10 MG, WEEKLY
     Route: 048
     Dates: start: 202105
  20. METHOTREXATE [Concomitant]
     Active Substance: METHOTREXATE
     Dosage: 10 MG
     Route: 065
     Dates: start: 202105
  21. PREDNISONE [Concomitant]
     Active Substance: PREDNISONE
     Dosage: 1 DF, DOSAGE INFORMATION IS UNAVAILABLE
     Route: 065
     Dates: start: 20210519
  22. PREDNISONE [Concomitant]
     Active Substance: PREDNISONE
     Dosage: 40 MG ONCE DAILY (IN TAPER DOSE )
     Dates: start: 20220707
  23. CHOLECALCIFEROL [Concomitant]
     Active Substance: CHOLECALCIFEROL
     Dosage: UNK
     Route: 065
  24. CHOLECALCIFEROL [Concomitant]
     Active Substance: CHOLECALCIFEROL
     Dosage: 1 DF, DOSAGE INFORMATION IS NOT AVAILABLE
     Route: 065

REACTIONS (22)
  - Crohn^s disease [Not Recovered/Not Resolved]
  - Psoriatic arthropathy [Unknown]
  - Disease recurrence [Unknown]
  - Drug ineffective [Unknown]
  - Female genital tract fistula [Not Recovered/Not Resolved]
  - Vaginal discharge [Not Recovered/Not Resolved]
  - Psoriasis [Not Recovered/Not Resolved]
  - Disease recurrence [Not Recovered/Not Resolved]
  - Drug level below therapeutic [Not Recovered/Not Resolved]
  - Alopecia [Unknown]
  - Abdominal mass [Unknown]
  - Condition aggravated [Not Recovered/Not Resolved]
  - Colitis [Unknown]
  - Secretion discharge [Unknown]
  - Pustule [Unknown]
  - Erythema [Unknown]
  - Muscle spasms [Unknown]
  - Off label use [Unknown]
  - Intentional product use issue [Unknown]
  - Off label use [Unknown]
  - Inappropriate schedule of product administration [Unknown]
  - Incorrect dose administered [Unknown]

NARRATIVE: CASE EVENT DATE: 20210101
